FAERS Safety Report 10461153 (Version 1)
Quarter: 2014Q3

REPORT INFORMATION
  Report Type: Spontaneous
  Country: US (occurrence: None)
  Receive Date: 20140917
  Receipt Date: 20140917
  Transmission Date: 20150326
  Serious: No
  Sender: FDA-Public Use
  Company Number: None

PATIENT

DRUGS (1)
  1. TESTIM [Suspect]
     Active Substance: TESTOSTERONE
     Indication: BLOOD TESTOSTERONE DECREASED
     Dosage: 1 PACKET/DAY  ONCE DAILY  APPLIED TO A SURFACE, USUALLY THE SKIN
     Route: 061

REACTIONS (2)
  - Product packaging issue [None]
  - Liquid product physical issue [None]

NARRATIVE: CASE EVENT DATE: 20140420
